FAERS Safety Report 19202718 (Version 1)
Quarter: 2021Q2

REPORT INFORMATION
  Report Type: Report from Study
  Country: US (occurrence: US)
  Receive Date: 20210502
  Receipt Date: 20210502
  Transmission Date: 20210717
  Serious: Yes (Hospitalization)
  Sender: FDA-Public Use
  Company Number: NVSC2021US091667

PATIENT
  Sex: Male

DRUGS (1)
  1. ENTRESTO [Suspect]
     Active Substance: SACUBITRIL\VALSARTAN
     Indication: CARDIAC FAILURE
     Dosage: 50 MG, BID,(24/26)MG
     Route: 048
     Dates: start: 20210408

REACTIONS (5)
  - Dyspnoea [Unknown]
  - Paraesthesia [Unknown]
  - Hypoaesthesia [Unknown]
  - Diarrhoea [Unknown]
  - Fatigue [Unknown]
